FAERS Safety Report 7817983-X (Version None)
Quarter: 2011Q4

REPORT INFORMATION
  Report Type: 
  Country: None (occurrence: None)
  Receive Date: 20111017
  Receipt Date: 20111007
  Transmission Date: 20120403
  Serious: Yes (Other)
  Sender: FDA-Public Use
  Company Number: IE-GLAXOSMITHKLINE-B0755899A

PATIENT
  Age: 27 Year
  Sex: Female
  Weight: 75 kg

DRUGS (4)
  1. PROPOFOL [Suspect]
     Indication: ANAESTHESIA
     Dosage: 350MG PER DAY
     Route: 042
     Dates: start: 20110722, end: 20110722
  2. CYCLIMORPH [Suspect]
     Indication: PROPHYLAXIS
     Dosage: 15MG PER DAY
     Route: 042
     Dates: start: 20110921, end: 20110922
  3. FENTANYL [Suspect]
     Indication: PAIN
     Dosage: 100MCG PER DAY
     Route: 042
     Dates: start: 20110722, end: 20110722
  4. ZOFRAN [Suspect]
     Indication: PROPHYLAXIS
     Dosage: 4MG PER DAY
     Route: 042
     Dates: start: 20110722, end: 20110722

REACTIONS (3)
  - UNRESPONSIVE TO STIMULI [None]
  - SOCIAL AVOIDANT BEHAVIOUR [None]
  - DYSTONIA [None]
